FAERS Safety Report 13705921 (Version 5)
Quarter: 2017Q3

REPORT INFORMATION
  Report Type: Spontaneous
  Country: US (occurrence: US)
  Receive Date: 20170630
  Receipt Date: 20170911
  Transmission Date: 20171127
  Serious: No
  Sender: FDA-Public Use
  Company Number: US-PFIZER INC-2017283668

PATIENT
  Age: 85 Year
  Sex: Female

DRUGS (3)
  1. LATANOPROST. [Suspect]
     Active Substance: LATANOPROST
     Indication: GLAUCOMA
     Dosage: 1 DROP IN EACH EYE/ 1 DROP IN BOTH EYES NIGHTLY THAT IS ONCE AT NIGHT
     Route: 047
     Dates: start: 20150429
  2. LATANOPROST. [Suspect]
     Active Substance: LATANOPROST
     Dosage: 1 GTT, 1X/DAY (PRODUCT STRENGTH AND COUNT SIZE DISPENSED: 0.005%, 2.5ML)
  3. LATANOPROST. [Suspect]
     Active Substance: LATANOPROST
     Dosage: 1 GTT, 1X/DAY, (1 DROP BOTH EYES NIGHTLY)
     Route: 047
     Dates: start: 20160511

REACTIONS (3)
  - Poor quality drug administered [Unknown]
  - Product quality issue [Unknown]
  - Cyanopsia [Recovered/Resolved]

NARRATIVE: CASE EVENT DATE: 20170626
